FAERS Safety Report 9793197 (Version 1)
Quarter: 2013Q4

REPORT INFORMATION
  Report Type: Spontaneous
  Country: US (occurrence: None)
  Receive Date: 20131231
  Receipt Date: 20131231
  Transmission Date: 20140711
  Serious: Yes (Hospitalization)
  Sender: FDA-Public Use
  Company Number: None

PATIENT
  Age: 78 Year
  Sex: Male
  Weight: 88.2 kg

DRUGS (1)
  1. CEFTRIAXONE [Suspect]
     Indication: INFECTION
     Route: 030

REACTIONS (2)
  - Thrombocytopenia [None]
  - Rash [None]
